FAERS Safety Report 6308965-8 (Version None)
Quarter: 2009Q3

REPORT INFORMATION
  Report Type: 
  Country: None (occurrence: None)
  Receive Date: 20090813
  Receipt Date: 20090810
  Transmission Date: 20100115
  Serious: Yes (Other)
  Sender: FDA-Public Use
  Company Number: US-JNJCH-2009021536

PATIENT
  Age: 56 Year
  Sex: Male
  Weight: 64.4 kg

DRUGS (3)
  1. ZYRTEC [Suspect]
     Indication: HYPERSENSITIVITY
     Dosage: TEXT:10 MG TABLET DAILY
     Route: 048
     Dates: start: 20051210, end: 20060117
  2. NORITATE [Concomitant]
     Indication: ROSACEA
     Dosage: TEXT:1X DAILY
     Route: 061
  3. WATER [Concomitant]
     Indication: DRUG USE FOR UNKNOWN INDICATION
     Dosage: TEXT:4 OZ
     Route: 065

REACTIONS (2)
  - BINOCULAR EYE MOVEMENT DISORDER [None]
  - VISION BLURRED [None]
